FAERS Safety Report 25947469 (Version 1)
Quarter: 2025Q4

REPORT INFORMATION
  Report Type: Spontaneous
  Country: CA (occurrence: CA)
  Receive Date: 20251022
  Receipt Date: 20251022
  Transmission Date: 20260117
  Serious: Yes (Death)
  Sender: ROCHE
  Company Number: CA-ROCHE-10000413058

PATIENT
  Sex: Female

DRUGS (12)
  1. TOCILIZUMAB [Suspect]
     Active Substance: TOCILIZUMAB
     Indication: Product used for unknown indication
     Route: 016
  2. TOCILIZUMAB [Suspect]
     Active Substance: TOCILIZUMAB
     Route: 042
  3. TOCILIZUMAB [Suspect]
     Active Substance: TOCILIZUMAB
     Route: 058
  4. TOCILIZUMAB [Suspect]
     Active Substance: TOCILIZUMAB
     Route: 058
  5. TOCILIZUMAB [Suspect]
     Active Substance: TOCILIZUMAB
     Route: 042
  6. TOCILIZUMAB [Suspect]
     Active Substance: TOCILIZUMAB
     Route: 058
  7. TOCILIZUMAB [Suspect]
     Active Substance: TOCILIZUMAB
     Route: 058
  8. TOCILIZUMAB [Suspect]
     Active Substance: TOCILIZUMAB
     Route: 042
  9. TOCILIZUMAB [Suspect]
     Active Substance: TOCILIZUMAB
     Route: 048
  10. MYCOPHENOLATE MOFETIL [Suspect]
     Active Substance: MYCOPHENOLATE MOFETIL
     Indication: Product used for unknown indication
     Route: 058
  11. NAPROXEN SODIUM [Suspect]
     Active Substance: NAPROXEN SODIUM
     Indication: Product used for unknown indication
     Route: 065
  12. SULFAMETHOXAZOLE\TRIMETHOPRIM [Suspect]
     Active Substance: SULFAMETHOXAZOLE\TRIMETHOPRIM
     Indication: Product used for unknown indication
     Route: 065

REACTIONS (14)
  - Hip arthroplasty [Fatal]
  - Hypercholesterolaemia [Fatal]
  - Hypersensitivity [Fatal]
  - Hypertension [Fatal]
  - Impaired healing [Fatal]
  - Infection [Fatal]
  - Infusion related reaction [Fatal]
  - Injury [Fatal]
  - Irritable bowel syndrome [Fatal]
  - Joint dislocation [Fatal]
  - Joint range of motion decreased [Fatal]
  - Joint stiffness [Fatal]
  - Knee arthroplasty [Fatal]
  - Hypoaesthesia [Fatal]
